FAERS Safety Report 16213031 (Version 3)
Quarter: 2019Q2

REPORT INFORMATION
  Report Type: Spontaneous
  Country: US (occurrence: US)
  Receive Date: 20190418
  Receipt Date: 20190610
  Transmission Date: 20190711
  Serious: Yes (Other)
  Sender: FDA-Public Use
  Company Number: US-JNJFOC-20190329421

PATIENT
  Sex: Female
  Weight: 95.26 kg

DRUGS (14)
  1. CRESTOR [Concomitant]
     Active Substance: ROSUVASTATIN CALCIUM
  2. DIGOX [Concomitant]
     Active Substance: DIGOXIN
  3. XANAX [Concomitant]
     Active Substance: ALPRAZOLAM
  4. AMLODIPINE [Concomitant]
     Active Substance: AMLODIPINE BESYLATE
  5. SENEXON [Concomitant]
     Active Substance: SENNOSIDES A AND B
  6. METOPROLOL TARTRATE AND HYDROCHLOROTHIAZIDE [Concomitant]
     Active Substance: HYDROCHLOROTHIAZIDE\METOPROLOL TARTRATE
  7. VICTOZA [Concomitant]
     Active Substance: LIRAGLUTIDE
  8. HUMALOG [Concomitant]
     Active Substance: INSULIN LISPRO
  9. JARDIANCE [Concomitant]
     Active Substance: EMPAGLIFLOZIN
  10. SOTALOL. [Concomitant]
     Active Substance: SOTALOL
  11. TREMFYA [Suspect]
     Active Substance: GUSELKUMAB
     Indication: PSORIASIS
     Route: 058
     Dates: start: 201902, end: 201903
  12. ATORVASTATIN [Concomitant]
     Active Substance: ATORVASTATIN
  13. LASIX [Concomitant]
     Active Substance: FUROSEMIDE
  14. LEVEMIR [Concomitant]
     Active Substance: INSULIN DETEMIR

REACTIONS (5)
  - Vomiting [Recovering/Resolving]
  - Upper respiratory tract infection [Recovering/Resolving]
  - Nausea [Recovering/Resolving]
  - Diarrhoea [Recovering/Resolving]
  - Cough [Recovered/Resolved]
